FAERS Safety Report 10175897 (Version 1)
Quarter: 2014Q2

REPORT INFORMATION
  Report Type: Spontaneous
  Country: US (occurrence: US)
  Receive Date: 20140516
  Receipt Date: 20140516
  Transmission Date: 20141212
  Serious: Yes (Hospitalization)
  Sender: FDA-Public Use
  Company Number: US-SA-2014SA063019

PATIENT
  Sex: Female
  Weight: 57.6 kg

DRUGS (17)
  1. FABRAZYME [Suspect]
     Indication: FABRY^S DISEASE
     Route: 042
     Dates: start: 20140403
  2. HEPARIN [Concomitant]
  3. NORMAL SALINE [Concomitant]
  4. SODIUM CHLORIDE [Concomitant]
  5. WATER FOR INJECTION [Concomitant]
  6. EPIPEN [Concomitant]
  7. PROTONIX [Concomitant]
  8. LASIX [Concomitant]
  9. METOPROLOL [Concomitant]
  10. WARFARIN SODIUM [Concomitant]
  11. VITAMIN D [Concomitant]
  12. ANTACIDS [Concomitant]
  13. LIPITOR [Concomitant]
  14. LEVOTHROID [Concomitant]
  15. ERGOCALCIFEROL [Concomitant]
  16. FISH OIL [Concomitant]
  17. ASPIRIN [Concomitant]

REACTIONS (1)
  - Uterine leiomyoma [Unknown]
